FAERS Safety Report 17427891 (Version 1)
Quarter: 2020Q1

REPORT INFORMATION
  Report Type: Spontaneous
  Country: US (occurrence: US)
  Receive Date: 20200218
  Receipt Date: 20200218
  Transmission Date: 20200409
  Serious: No
  Sender: FDA-Public Use
  Company Number: US-TEVA-2020-US-1185082

PATIENT
  Age: 24 Year
  Sex: Female

DRUGS (1)
  1. MUPIROCIN. [Suspect]
     Active Substance: MUPIROCIN
     Indication: STAPHYLOCOCCAL INFECTION
     Dates: start: 2020

REACTIONS (3)
  - Incorrect route of product administration [Unknown]
  - Maternal exposure during pregnancy [Unknown]
  - Off label use [Unknown]
